FAERS Safety Report 22226454 (Version 16)
Quarter: 2024Q3

REPORT INFORMATION
  Report Type: Spontaneous
  Country: CA (occurrence: CA)
  Receive Date: 20230419
  Receipt Date: 20240926
  Transmission Date: 20241017
  Serious: Yes (Hospitalization, Other)
  Sender: CELLTRION
  Company Number: CA-CELLTRION INC.-2023CA005994

PATIENT

DRUGS (11)
  1. INFLECTRA [Suspect]
     Active Substance: INFLIXIMAB-DYYB
     Indication: Colitis ulcerative
     Dosage: 500 MG, W0 INFUSION
     Route: 042
     Dates: start: 20230308, end: 20230308
  2. INFLECTRA [Suspect]
     Active Substance: INFLIXIMAB-DYYB
     Dosage: 5 MG/KG (300 MG), W2 INFUSION
     Route: 042
     Dates: start: 20230313, end: 20230313
  3. INFLECTRA [Suspect]
     Active Substance: INFLIXIMAB-DYYB
     Dosage: 10 MG/KG (500 MG) Q 2 WEEKS AND 1 DAY FOR W6 INFUSION (W2, W6, THEN Q 8 WEEKS)
     Route: 042
     Dates: start: 20230323
  4. INFLECTRA [Suspect]
     Active Substance: INFLIXIMAB-DYYB
     Dosage: 10 MG/KG, W2, W6, THEN EVERY 8 WEEKS
     Route: 042
     Dates: start: 20230626
  5. INFLECTRA [Suspect]
     Active Substance: INFLIXIMAB-DYYB
     Dosage: 10 MG/KG, W2, W6, THEN EVERY 8 WEEKS
     Route: 042
     Dates: start: 20230706
  6. INFLECTRA [Suspect]
     Active Substance: INFLIXIMAB-DYYB
     Dosage: 10 MG/KG, W2, W6, THEN EVERY 8 WEEKS
     Route: 042
     Dates: start: 20230821
  7. INFLECTRA [Suspect]
     Active Substance: INFLIXIMAB-DYYB
     Dosage: 10 MG/KG, RE-INDUCE AT WEEK 0,2, 6 WEEKS THAN EVERY 4 WEEKS
     Route: 042
     Dates: start: 20240129
  8. INFLECTRA [Suspect]
     Active Substance: INFLIXIMAB-DYYB
     Dosage: 10 MG/KG, AT WEEK 0,2, 6 WEEKS THAN EVERY 4 WEEKS
     Route: 042
     Dates: start: 20240828
  9. ATORVASTATIN [Concomitant]
     Active Substance: ATORVASTATIN
     Dosage: 80 MG, FREQUENCY: UNKNOWN
     Route: 065
  10. INSULIN NOS [Concomitant]
     Active Substance: INSULIN NOS
     Dosage: UNK
  11. PREGABALIN [Concomitant]
     Active Substance: PREGABALIN
     Dosage: 15 MG, FREQUENCY: UNKNOWN
     Route: 065

REACTIONS (19)
  - Colonic fistula [Not Recovered/Not Resolved]
  - Colonic fistula [Recovering/Resolving]
  - Vaginal haemorrhage [Not Recovered/Not Resolved]
  - Female genital tract fistula [Recovering/Resolving]
  - Abdominal pain [Recovering/Resolving]
  - Pyrexia [Recovering/Resolving]
  - Cerebrovascular accident [Recovered/Resolved with Sequelae]
  - Mobility decreased [Not Recovered/Not Resolved]
  - Dementia [Unknown]
  - Abscess [Unknown]
  - Liver abscess [Not Recovered/Not Resolved]
  - Metastatic neoplasm [Not Recovered/Not Resolved]
  - Faecal calprotectin increased [Unknown]
  - Condition aggravated [Recovering/Resolving]
  - Fall [Unknown]
  - Haemoglobin decreased [Unknown]
  - Hepatic lesion [Not Recovered/Not Resolved]
  - Off label use [Unknown]
  - Off label use [Unknown]

NARRATIVE: CASE EVENT DATE: 20230101
